FAERS Safety Report 9408500 (Version 2)
Quarter: 2013Q3

REPORT INFORMATION
  Report Type: Spontaneous
  Country: US (occurrence: None)
  Receive Date: 20130716
  Receipt Date: 20130725
  Transmission Date: 20140515
  Serious: Yes (Other)
  Sender: FDA-Public Use
  Company Number: JPI-P-033470

PATIENT
  Age: 58 Year
  Sex: Female
  Weight: 97.52 kg

DRUGS (18)
  1. XYREM [Suspect]
     Indication: NARCOLEPSY
     Route: 048
     Dates: start: 20080717
  2. ROPINIROLE [Concomitant]
  3. CALCIUM [Concomitant]
  4. PREGABALIN [Concomitant]
  5. HYDROCHLOROTHIAZIDE [Concomitant]
  6. MULTIVITAMINS [Concomitant]
  7. L-CARNITINE [Concomitant]
  8. D-RIBOSE [Concomitant]
  9. V ITAMIN D3 [Concomitant]
  10. CONJUGATED ESTROGENS [Concomitant]
  11. MODAFINIL [Concomitant]
  12. DULOXETINE [Concomitant]
  13. IPRATROPIUM [Concomitant]
  14. MOMETASONE FUROATE [Concomitant]
  15. IRON [Concomitant]
  16. VITAMIN B12 [Concomitant]
  17. SODIUM SULFACETAMIDE [Concomitant]
  18. SODIUM SULFACETAMIDE WITH SULFUR (CREAM) [Concomitant]

REACTIONS (4)
  - Surgery [None]
  - Intervertebral disc protrusion [None]
  - Intervertebral disc protrusion [None]
  - Back pain [None]
